FAERS Safety Report 21346484 (Version 2)
Quarter: 2022Q3

REPORT INFORMATION
  Report Type: Report from Study
  Country: EG (occurrence: EG)
  Receive Date: 20220917
  Receipt Date: 20220921
  Transmission Date: 20221027
  Serious: Yes (Other)
  Sender: FDA-Public Use
  Company Number: EG-NOVARTISPH-NVSC2022EG209300

PATIENT
  Age: 46 Year
  Sex: Female

DRUGS (1)
  1. HYRIMOZ [Suspect]
     Active Substance: ADALIMUMAB-ADAZ
     Indication: Psoriasis
     Dosage: UNK, (2 PREFILLED PEN OF HIRIMOZ EVERY 15 DAYS FOR 3 MONTH THEN 1 PREFILLED OF HIRMOZ PER MONTH)
     Route: 065
     Dates: start: 202203

REACTIONS (4)
  - Diabetes mellitus [Not Recovered/Not Resolved]
  - Nephritis [Recovering/Resolving]
  - Inflammation [Recovering/Resolving]
  - Drug ineffective [Not Recovered/Not Resolved]

NARRATIVE: CASE EVENT DATE: 20220701
